FAERS Safety Report 11822251 (Version 2)
Quarter: 2016Q1

REPORT INFORMATION
  Report Type: Spontaneous
  Country: US (occurrence: US)
  Receive Date: 20151210
  Receipt Date: 20160202
  Transmission Date: 20160525
  Serious: No
  Sender: FDA-Public Use
  Company Number: US-JNJFOC-20141107112

PATIENT
  Age: 62 Year
  Sex: Male

DRUGS (28)
  1. IMBRUVICA [Suspect]
     Active Substance: IBRUTINIB
     Indication: CHRONIC LYMPHOCYTIC LEUKAEMIA
     Route: 048
     Dates: start: 20150831, end: 20151208
  2. BENICAR HCT [Concomitant]
     Active Substance: HYDROCHLOROTHIAZIDE\OLMESARTAN MEDOXOMIL
     Route: 048
  3. IMBRUVICA [Suspect]
     Active Substance: IBRUTINIB
     Indication: CHRONIC LYMPHOCYTIC LEUKAEMIA
     Route: 048
  4. IMBRUVICA [Suspect]
     Active Substance: IBRUTINIB
     Indication: CHRONIC LYMPHOCYTIC LEUKAEMIA
     Route: 048
     Dates: start: 201406, end: 201508
  5. PRILOSEC [Concomitant]
     Active Substance: OMEPRAZOLE MAGNESIUM
     Route: 048
  6. VIAGRA [Concomitant]
     Active Substance: SILDENAFIL CITRATE
  7. DOCUSATE SODIUM. [Concomitant]
     Active Substance: DOCUSATE SODIUM
     Indication: ABNORMAL FAECES
  8. LASIX [Concomitant]
     Active Substance: FUROSEMIDE
  9. LISINOPRIL. [Concomitant]
     Active Substance: LISINOPRIL
     Indication: BLOOD PRESSURE MEASUREMENT
  10. LORTAB [Concomitant]
     Active Substance: ACETAMINOPHEN\HYDROCODONE BITARTRATE
     Indication: PAIN
     Route: 048
  11. PROPAFENONE. [Concomitant]
     Active Substance: PROPAFENONE
  12. PHENERGAN [Concomitant]
     Active Substance: PROMETHAZINE HYDROCHLORIDE
     Indication: NAUSEA
     Dosage: Q 4-6 HRS, PRN
     Route: 048
  13. IMBRUVICA [Suspect]
     Active Substance: IBRUTINIB
     Indication: CHRONIC LYMPHOCYTIC LEUKAEMIA
     Route: 048
  14. VALIUM [Concomitant]
     Active Substance: DIAZEPAM
     Indication: ANXIETY
     Dosage: FOR PRN USE ONLY.
  15. CRESTOR [Concomitant]
     Active Substance: ROSUVASTATIN CALCIUM
  16. NIFEDIAC CC [Concomitant]
     Active Substance: NIFEDIPINE
  17. NORCO [Concomitant]
     Active Substance: ACETAMINOPHEN\HYDROCODONE BITARTRATE
     Indication: PAIN
     Dosage: 7.5-325 MG, 1 TAB Q6H PRN
  18. MOTRIN [Concomitant]
     Active Substance: IBUPROFEN
     Route: 048
  19. KENALOG [Concomitant]
     Active Substance: TRIAMCINOLONE ACETONIDE
     Dosage: 40 MG, SINGLE
     Route: 030
  20. FLEXERIL [Concomitant]
     Active Substance: CYCLOBENZAPRINE HYDROCHLORIDE
  21. VITAMIN B12 [Concomitant]
     Active Substance: CYANOCOBALAMIN
     Route: 048
  22. KLOR-CON [Concomitant]
     Active Substance: POTASSIUM CHLORIDE
  23. HYDROCODONE [Concomitant]
     Active Substance: HYDROCODONE
  24. TOPROL XL [Concomitant]
     Active Substance: METOPROLOL SUCCINATE
  25. IMBRUVICA [Suspect]
     Active Substance: IBRUTINIB
     Indication: CHRONIC LYMPHOCYTIC LEUKAEMIA
     Route: 048
  26. ATENOLOL. [Concomitant]
     Active Substance: ATENOLOL
  27. CIALIS [Concomitant]
     Active Substance: TADALAFIL
  28. METFORMIN [Concomitant]
     Active Substance: METFORMIN HYDROCHLORIDE

REACTIONS (32)
  - Skin atrophy [Not Recovered/Not Resolved]
  - Abdominal discomfort [Not Recovered/Not Resolved]
  - Blood glucose increased [Not Recovered/Not Resolved]
  - Alopecia [Not Recovered/Not Resolved]
  - Dry mouth [Unknown]
  - Fatigue [Unknown]
  - Contusion [Unknown]
  - Arthralgia [Not Recovered/Not Resolved]
  - Diarrhoea [Recovering/Resolving]
  - Back pain [Not Recovered/Not Resolved]
  - Blood blister [Not Recovered/Not Resolved]
  - Pyrexia [Recovered/Resolved]
  - White blood cell count decreased [Unknown]
  - Skin exfoliation [Not Recovered/Not Resolved]
  - Disturbance in attention [Unknown]
  - Asthenia [Not Recovered/Not Resolved]
  - Nervousness [Unknown]
  - Drug dose omission [Unknown]
  - Chills [Not Recovered/Not Resolved]
  - Muscle spasms [Recovering/Resolving]
  - Hypoaesthesia [Not Recovered/Not Resolved]
  - Dysgeusia [Unknown]
  - Pain [Unknown]
  - Dyspepsia [Not Recovered/Not Resolved]
  - Abdominal pain [Recovered/Resolved]
  - White blood cell count increased [Recovering/Resolving]
  - Musculoskeletal discomfort [Unknown]
  - Hyperhidrosis [Not Recovered/Not Resolved]
  - Hypertension [Not Recovered/Not Resolved]
  - Insomnia [Not Recovered/Not Resolved]
  - Haemorrhage [Unknown]
  - Myalgia [Unknown]

NARRATIVE: CASE EVENT DATE: 2014
